FAERS Safety Report 12214567 (Version 2)
Quarter: 2016Q1

REPORT INFORMATION
  Report Type: Spontaneous
  Country: DZ (occurrence: DZ)
  Receive Date: 20160328
  Receipt Date: 20160330
  Transmission Date: 20160526
  Serious: Yes (Other)
  Sender: FDA-Public Use
  Company Number: DZ-B.I. PHARMACEUTICALS,INC./RIDGEFIELD-2016-BI-17796DZ

PATIENT
  Age: 50 Year
  Sex: Female

DRUGS (1)
  1. MICARDIS [Suspect]
     Active Substance: TELMISARTAN
     Indication: HYPERTENSION
     Dosage: DOSE PER APPLICATION/ DAILY DOSE: 40 /12.5 MG
     Route: 048

REACTIONS (2)
  - Diarrhoea [Unknown]
  - Mood altered [Unknown]
